FAERS Safety Report 8944871 (Version 5)
Quarter: 2013Q3

REPORT INFORMATION
  Report Type: Spontaneous
  Country: US (occurrence: US)
  Receive Date: 20121204
  Receipt Date: 20130829
  Transmission Date: 20140515
  Serious: Yes (Hospitalization, Disabling, Other)
  Sender: FDA-Public Use
  Company Number: US-009507513-1211USA012344

PATIENT
  Sex: Female
  Weight: 59.86 kg

DRUGS (7)
  1. FOSAMAX [Suspect]
     Indication: OSTEOPOROSIS
     Dosage: 70 MG, UNK
     Route: 048
     Dates: end: 200905
  2. FOSAMAX [Suspect]
     Indication: OSTEOPENIA
     Dosage: UNK
     Route: 048
     Dates: start: 1996
  3. FOSAMAX [Suspect]
     Dosage: 10 MG, QD
     Route: 048
     Dates: start: 19960322, end: 19961017
  4. FOSAMAX [Suspect]
     Dosage: UNK
     Route: 048
     Dates: start: 19970919, end: 20001026
  5. FOSAMAX [Suspect]
     Dosage: 70 MG, QW
     Route: 048
     Dates: start: 20010913
  6. ALENDRONATE SODIUM [Suspect]
     Indication: OSTEOPOROSIS
     Dosage: 70 MG, UNK
     Route: 048
     Dates: start: 200906, end: 201101
  7. COZAAR [Concomitant]
     Dosage: UNK
     Dates: start: 1997

REACTIONS (63)
  - Open reduction of fracture [Unknown]
  - Femur fracture [Unknown]
  - Osteoporosis [Unknown]
  - Surgery [Unknown]
  - Bone lesion excision [Unknown]
  - Uterine dilation and curettage [Unknown]
  - Low turnover osteopathy [Unknown]
  - Skin cancer [Unknown]
  - Rotator cuff repair [Unknown]
  - Tonsillectomy [Unknown]
  - Femur fracture [Unknown]
  - Exostosis [Unknown]
  - Rotator cuff syndrome [Unknown]
  - Tonsillitis [Unknown]
  - Hypothyroidism [Unknown]
  - Periodontal operation [Unknown]
  - Night sweats [Unknown]
  - Depression [Unknown]
  - Onychomycosis [Unknown]
  - Polymenorrhoea [Unknown]
  - Abdominal tenderness [Unknown]
  - Anxiety [Not Recovered/Not Resolved]
  - Spinal osteoarthritis [Unknown]
  - Osteoarthritis [Unknown]
  - Osteoarthritis [Unknown]
  - Irritable bowel syndrome [Unknown]
  - Road traffic accident [Unknown]
  - Epicondylitis [Unknown]
  - Arthroscopy [Unknown]
  - Nasopharyngitis [Unknown]
  - Sciatica [Unknown]
  - Tachycardia [Unknown]
  - Vitamin D deficiency [Unknown]
  - Drug intolerance [Unknown]
  - Hypotension [Unknown]
  - Hypokalaemia [Unknown]
  - Tinea pedis [Unknown]
  - Pain [Unknown]
  - Skin exfoliation [Unknown]
  - Meniscus injury [Unknown]
  - Arthroscopy [Unknown]
  - Anaemia [Unknown]
  - Insomnia [Unknown]
  - Pollakiuria [Unknown]
  - Musculoskeletal pain [Not Recovered/Not Resolved]
  - Neck pain [Unknown]
  - Gastritis [Unknown]
  - Pyrexia [Unknown]
  - Drug ineffective [Unknown]
  - Nausea [Unknown]
  - Drug ineffective [Unknown]
  - Arthralgia [Not Recovered/Not Resolved]
  - Back pain [Unknown]
  - Rash [Unknown]
  - Myalgia [Unknown]
  - Arthralgia [Unknown]
  - Constipation [Unknown]
  - Nausea [Unknown]
  - Muscle spasms [Unknown]
  - Nausea [Unknown]
  - Oesophagitis [Unknown]
  - Diarrhoea [Not Recovered/Not Resolved]
  - Gastrooesophageal reflux disease [Not Recovered/Not Resolved]
